FAERS Safety Report 8980054 (Version 2)
Quarter: 2013Q1

REPORT INFORMATION
  Report Type: Spontaneous
  Country: US (occurrence: US)
  Receive Date: 20121221
  Receipt Date: 20130109
  Transmission Date: 20140127
  Serious: Yes (Other)
  Sender: FDA-Public Use
  Company Number: CHPA2012US025430

PATIENT
  Age: 51 Year
  Sex: Male

DRUGS (3)
  1. MYOFLEX ANALGESIC CREME [Suspect]
     Indication: MUSCLE STRAIN
     Dosage: 1 DF, BID PRN
     Route: 061
  2. FISH OIL [Concomitant]
     Dosage: UNK, UNK
  3. MULTIVITAMINS [Concomitant]
     Dosage: UNK, UNK

REACTIONS (4)
  - Myocardial infarction [Recovered/Resolved]
  - Blood cholesterol increased [Recovered/Resolved]
  - Arthralgia [Recovered/Resolved]
  - Fatigue [Recovered/Resolved]
